FAERS Safety Report 7911759-0 (Version None)
Quarter: 2011Q4

REPORT INFORMATION
  Report Type: 
  Country: None (occurrence: None)
  Receive Date: 20111114
  Receipt Date: 20111114
  Transmission Date: 20120403
  Serious: No
  Sender: FDA-Public Use
  Company Number: None

PATIENT
  Age: 38 Year
  Sex: Male

DRUGS (1)
  1. METHYLPHENIDATE [Suspect]
     Dosage: ONE TABLET
     Route: 048
     Dates: start: 20111103, end: 20111111

REACTIONS (2)
  - PRODUCT COUNTERFEIT [None]
  - DRUG INEFFECTIVE [None]
